FAERS Safety Report 19583615 (Version 1)
Quarter: 2021Q3

REPORT INFORMATION
  Report Type: Spontaneous
  Country: US (occurrence: US)
  Receive Date: 20210720
  Receipt Date: 20210720
  Transmission Date: 20211014
  Serious: No
  Sender: FDA-Public Use
  Company Number: None

PATIENT
  Age: 72 Year
  Sex: Male

DRUGS (2)
  1. LOSARTAN (LOSARTAN 50MG TAB) [Suspect]
     Active Substance: LOSARTAN
     Indication: HYPERTENSION
     Dosage: ?          OTHER FREQUENCY:AM;?
     Route: 048
     Dates: start: 20190125, end: 20200428
  2. SULFAMETHOXAZOLE/TRIMETHOPRIM (SULFAMETHOXAZOLE 400MG/TRIMETOPRIM 80MG [Suspect]
     Active Substance: SULFAMETHOXAZOLE\TRIMETHOPRIM
     Indication: STAPHYLOCOCCAL INFECTION
     Route: 048
     Dates: start: 20200412, end: 20200422

REACTIONS (1)
  - Hyperkalaemia [None]

NARRATIVE: CASE EVENT DATE: 20200428
